FAERS Safety Report 5579894-2 (Version None)
Quarter: 2008Q1

REPORT INFORMATION
  Report Type: 
  Country: None (occurrence: None)
  Receive Date: 20080103
  Receipt Date: 20071212
  Transmission Date: 20080703
  Serious: Yes (Other)
  Sender: FDA-Public Use
  Company Number: IE-BAYER-IE-2007-035253

PATIENT
  Age: 27 Year
  Sex: Female

DRUGS (1)
  1. YASMIN [Suspect]
     Indication: ORAL CONTRACEPTION
     Route: 048
     Dates: start: 20070621

REACTIONS (2)
  - ABORTION SPONTANEOUS [None]
  - PREGNANCY ON ORAL CONTRACEPTIVE [None]
